FAERS Safety Report 8533212-6 (Version None)
Quarter: 2012Q3

REPORT INFORMATION
  Report Type: 
  Country: None (occurrence: None)
  Receive Date: 20120724
  Receipt Date: 20120718
  Transmission Date: 20120928
  Serious: Yes (Other)
  Sender: FDA-Public Use
  Company Number: CN-PFIZER INC-2012172880

PATIENT

DRUGS (1)
  1. LIPITOR [Suspect]
     Dosage: 20 MG 1X/DAY
     Route: 048
     Dates: start: 20120712

REACTIONS (2)
  - BLOOD CREATINE PHOSPHOKINASE INCREASED [None]
  - RENAL FAILURE [None]
